FAERS Safety Report 7528448-7 (Version None)
Quarter: 2011Q2

REPORT INFORMATION
  Report Type: 
  Country: None (occurrence: None)
  Receive Date: 20110607
  Receipt Date: 20110525
  Transmission Date: 20111010
  Serious: Yes (Hospitalization, Other)
  Sender: FDA-Public Use
  Company Number: US-ELI_LILLY_AND_COMPANY-US201105007996

PATIENT
  Sex: Female

DRUGS (17)
  1. CYMBALTA [Concomitant]
     Dosage: UNK, UNKNOWN
     Route: 065
  2. KLOR-CON [Concomitant]
     Dosage: UNK, UNKNOWN
     Route: 065
  3. ENABLEX                            /01760402/ [Concomitant]
     Dosage: UNK, UNKNOWN
     Route: 065
  4. ASPIRIN [Concomitant]
     Dosage: UNK, UNKNOWN
     Route: 065
  5. LEXAPRO [Concomitant]
     Dosage: UNK, UNKNOWN
     Route: 065
  6. FORTEO [Suspect]
     Indication: OSTEOPOROSIS
     Dosage: 20 UG, QD
     Route: 065
     Dates: start: 20110501
  7. SPIRONOLACTONE [Concomitant]
     Dosage: UNK, UNKNOWN
     Route: 065
  8. AMLODIPINE BESYLATE [Concomitant]
     Dosage: UNK, UNKNOWN
     Route: 065
  9. CLONIDINE [Concomitant]
     Dosage: UNK, UNKNOWN
     Route: 065
  10. LASIX [Concomitant]
     Dosage: UNK, UNKNOWN
     Route: 065
  11. PREDNISONE [Concomitant]
     Dosage: UNK, UNKNOWN
     Route: 065
  12. CALCITRAL [Concomitant]
     Dosage: UNK, UNKNOWN
     Route: 065
  13. VENTOLIN [Concomitant]
     Dosage: UNK, UNKNOWN
     Route: 065
  14. KLONOPIN [Concomitant]
     Dosage: UNK, UNKNOWN
     Route: 065
  15. FENTANYL [Concomitant]
     Dosage: UNK, UNKNOWN
     Route: 065
  16. CARVEDILOL [Concomitant]
     Dosage: UNK, UNKNOWN
     Route: 065
  17. STOOL SOFTENER [Concomitant]
     Dosage: UNK, UNKNOWN
     Route: 065

REACTIONS (11)
  - URINARY TRACT INFECTION [None]
  - DEHYDRATION [None]
  - INFECTION [None]
  - POLLAKIURIA [None]
  - UNRESPONSIVE TO STIMULI [None]
  - STAPHYLOCOCCAL INFECTION [None]
  - HYPOTENSION [None]
  - SEPSIS [None]
  - DEVICE RELATED INFECTION [None]
  - ENTEROCOCCAL INFECTION [None]
  - ASTHENIA [None]
